FAERS Safety Report 8144121-9 (Version None)
Quarter: 2012Q1

REPORT INFORMATION
  Report Type: 
  Country: None (occurrence: None)
  Receive Date: 20120217
  Receipt Date: 20120208
  Transmission Date: 20120608
  Serious: Yes (Hospitalization, Other)
  Sender: FDA-Public Use
  Company Number: ES-ABBOTT-12P-144-0897592-00

PATIENT
  Age: 36 Year
  Sex: Male

DRUGS (2)
  1. IMURAN [Suspect]
     Indication: CROHN'S DISEASE
     Route: 048
     Dates: start: 20010101
  2. HUMIRA [Suspect]
     Indication: CROHN'S DISEASE
     Route: 058
     Dates: start: 20030101, end: 20120101

REACTIONS (6)
  - MYALGIA [None]
  - ABDOMINAL PAIN LOWER [None]
  - ASCITES [None]
  - PYREXIA [None]
  - PLEURAL EFFUSION [None]
  - ANAPLASTIC LARGE CELL LYMPHOMA T- AND NULL-CELL TYPES [None]
